FAERS Safety Report 9112629 (Version 2)
Quarter: 2013Q1

REPORT INFORMATION
  Report Type: Spontaneous
  Country: CL (occurrence: CL)
  Receive Date: 20130211
  Receipt Date: 20130325
  Transmission Date: 20140127
  Serious: Yes (Other)
  Sender: FDA-Public Use
  Company Number: PHHY2013CL003587

PATIENT
  Age: 26 Year
  Sex: Female

DRUGS (10)
  1. METHYLDOPA [Suspect]
     Indication: HYPERTENSION
  2. PROGESTERONE [Suspect]
     Dosage: 150 MG, WEEKLY
  3. METHYLPREDNISOLONE [Suspect]
     Dosage: 1 G, UNK
  4. PREDNISONE [Suspect]
     Dosage: 60 MG, UNK
  5. CEFAZOLIN [Suspect]
  6. AZATHIOPRINE [Suspect]
     Dosage: 100 MG, UNK
  7. HYDRALAZINE [Suspect]
     Indication: HYPERTENSION
  8. FENOTEROL [Suspect]
     Indication: UTERINE CONTRACTIONS DURING PREGNANCY
  9. HALOTHANE [Suspect]
     Indication: GENERAL ANAESTHESIA
  10. BUPIVACAINE [Suspect]
     Indication: GENERAL ANAESTHESIA

REACTIONS (9)
  - Premature delivery [Unknown]
  - Meconium in amniotic fluid [Unknown]
  - Amniotic fluid volume increased [Unknown]
  - Endometritis [Recovered/Resolved]
  - Cholestasis [Unknown]
  - Transaminases increased [Unknown]
  - Jaundice [Unknown]
  - Pruritus [Unknown]
  - Maternal exposure during pregnancy [Unknown]
